FAERS Safety Report 9999299 (Version 1)
Quarter: 2014Q1

REPORT INFORMATION
  Report Type: Spontaneous
  Country: US (occurrence: None)
  Receive Date: 20140311
  Receipt Date: 20140311
  Transmission Date: 20141002
  Serious: Yes (Other)
  Sender: FDA-Public Use
  Company Number: None

PATIENT
  Age: 68 Year
  Sex: Male
  Weight: 72.58 kg

DRUGS (1)
  1. FINASTERIDE [Suspect]
     Indication: BENIGN PROSTATIC HYPERPLASIA
     Dosage: APPROX 2010-2011
     Route: 048
     Dates: start: 2010, end: 2011

REACTIONS (3)
  - Penis disorder [None]
  - Peyronie^s disease [None]
  - No therapeutic response [None]
